FAERS Safety Report 7693506-3 (Version None)
Quarter: 2011Q3

REPORT INFORMATION
  Report Type: 
  Country: None (occurrence: None)
  Receive Date: 20110819
  Receipt Date: 20110819
  Transmission Date: 20111222
  Serious: Yes (Life-Threatening)
  Sender: FDA-Public Use
  Company Number: None

PATIENT
  Age: 47 Year
  Sex: Female
  Weight: 58.967 kg

DRUGS (1)
  1. ZOLPIDEM TARTRATE [Suspect]
     Indication: INSOMNIA
     Dosage: ONE TABLET
     Route: 048
     Dates: start: 20100803, end: 20110815

REACTIONS (4)
  - DEPRESSION [None]
  - CONDITION AGGRAVATED [None]
  - SOMNAMBULISM [None]
  - SUICIDAL IDEATION [None]
